FAERS Safety Report 10588631 (Version 1)
Quarter: 2014Q4

REPORT INFORMATION
  Report Type: Spontaneous
  Country: US (occurrence: US)
  Receive Date: 20141117
  Receipt Date: 20141117
  Transmission Date: 20150529
  Serious: No
  Sender: FDA-Public Use
  Company Number: US-PFIZER INC-2014315480

PATIENT
  Age: 55 Year
  Sex: Female
  Weight: 74.38 kg

DRUGS (2)
  1. CLONIDINE. [Concomitant]
     Active Substance: CLONIDINE
     Dosage: UNK
  2. RELPAX [Suspect]
     Active Substance: ELETRIPTAN HYDROBROMIDE
     Indication: MIGRAINE
     Dosage: 70 MG, UNK

REACTIONS (2)
  - Migraine [Not Recovered/Not Resolved]
  - Pain [Not Recovered/Not Resolved]
